FAERS Safety Report 9318358 (Version 1)
Quarter: 2013Q2

REPORT INFORMATION
  Report Type: Spontaneous
  Country: US (occurrence: US)
  Receive Date: 20130530
  Receipt Date: 20130530
  Transmission Date: 20140414
  Serious: No
  Sender: FDA-Public Use
  Company Number: US-NOVEN-12US005752

PATIENT
  Age: 14 Year
  Sex: Male
  Weight: 69.39 kg

DRUGS (2)
  1. DAYTRANA [Suspect]
     Indication: ATTENTION DEFICIT/HYPERACTIVITY DISORDER
     Dosage: 10 MG, SCHOOL DAYS
     Route: 062
     Dates: start: 2008, end: 20121119
  2. DAYTRANA [Suspect]
     Dosage: 15 MG, SCHOOL DAYS
     Route: 062
     Dates: start: 20121119

REACTIONS (4)
  - Application site pruritus [Not Recovered/Not Resolved]
  - Drug administration error [Not Recovered/Not Resolved]
  - Drug dose omission [Recovered/Resolved]
  - Product quality issue [Not Recovered/Not Resolved]
